FAERS Safety Report 8393051-6 (Version None)
Quarter: 2012Q1

REPORT INFORMATION
  Report Type: 
  Country: None (occurrence: None)
  Receive Date: 20120323
  Receipt Date: 20110407
  Transmission Date: 20120608
  Serious: Yes (Disabling)
  Sender: FDA-Public Use
  Company Number: 163-21880-11030447

PATIENT
  Age: 73 Year
  Sex: Female

DRUGS (8)
  1. DEXAMETHASONE [Concomitant]
  2. ATENOLOL [Concomitant]
  3. PAXIL [Concomitant]
  4. REVLIMID [Suspect]
     Indication: MULTIPLE MYELOMA
     Dosage: 15 MG, 1 IN 1 D, PO; 15 MG, 1 IN 1 D, PO; 25 MG, 1 IN 1 D, PO; 15 MG, DAILY FOR 21 DAYS EVERY 28 DAY
     Route: 048
     Dates: start: 20101201
  5. REVLIMID [Suspect]
     Indication: MULTIPLE MYELOMA
     Dosage: 15 MG, 1 IN 1 D, PO; 15 MG, 1 IN 1 D, PO; 25 MG, 1 IN 1 D, PO; 15 MG, DAILY FOR 21 DAYS EVERY 28 DAY
     Route: 048
     Dates: start: 20110328
  6. REVLIMID [Suspect]
     Indication: MULTIPLE MYELOMA
     Dosage: 15 MG, 1 IN 1 D, PO; 15 MG, 1 IN 1 D, PO; 25 MG, 1 IN 1 D, PO; 15 MG, DAILY FOR 21 DAYS EVERY 28 DAY
     Route: 048
     Dates: start: 20110201, end: 20110226
  7. REVLIMID [Suspect]
     Indication: MULTIPLE MYELOMA
     Dosage: 15 MG, 1 IN 1 D, PO; 15 MG, 1 IN 1 D, PO; 25 MG, 1 IN 1 D, PO; 15 MG, DAILY FOR 21 DAYS EVERY 28 DAY
     Route: 048
     Dates: start: 20080701
  8. LISINOPRIL AND HYDROCHLOROTHIAZIDE) (ZESTRORETIC) [Concomitant]

REACTIONS (3)
  - LOWER RESPIRATORY TRACT INFECTION [None]
  - CONSTIPATION [None]
  - INFLUENZA [None]
